FAERS Safety Report 13668976 (Version 6)
Quarter: 2018Q2

REPORT INFORMATION
  Report Type: Spontaneous
  Country: NL (occurrence: NL)
  Receive Date: 20170620
  Receipt Date: 20180504
  Transmission Date: 20180711
  Serious: Yes (Death, Life-Threatening, Hospitalization)
  Sender: FDA-Public Use
  Company Number: NL-PFIZER INC-2017265359

PATIENT
  Age: 55 Year
  Sex: Female

DRUGS (11)
  1. PARACETAMOL [Suspect]
     Active Substance: ACETAMINOPHEN
     Dosage: 10 G, UNK
  2. OLANZAPINE. [Suspect]
     Active Substance: OLANZAPINE
     Indication: PANIC DISORDER
  3. SERTRALINE [Suspect]
     Active Substance: SERTRALINE HYDROCHLORIDE
     Indication: DEPRESSION
  4. NIFEDIPINE. [Suspect]
     Active Substance: NIFEDIPINE
     Dosage: 200 MG, UNK
  5. OLANZAPINE. [Suspect]
     Active Substance: OLANZAPINE
     Indication: ANXIETY
     Dosage: 65 MG, UNK
  6. OLANZAPINE. [Suspect]
     Active Substance: OLANZAPINE
     Indication: DEPRESSION
  7. LORAZEPAM. [Suspect]
     Active Substance: LORAZEPAM
     Indication: PANIC DISORDER
  8. SERTRALINE [Suspect]
     Active Substance: SERTRALINE HYDROCHLORIDE
     Indication: PANIC DISORDER
  9. LORAZEPAM. [Suspect]
     Active Substance: LORAZEPAM
     Indication: DEPRESSION
  10. LORAZEPAM. [Suspect]
     Active Substance: LORAZEPAM
     Indication: ANXIETY
     Dosage: 180 MG, UNK
  11. SERTRALINE [Suspect]
     Active Substance: SERTRALINE HYDROCHLORIDE
     Indication: ANXIETY
     Dosage: 4600 MG, UNK

REACTIONS (3)
  - Serotonin syndrome [Fatal]
  - Multiple organ dysfunction syndrome [Fatal]
  - Overdose [Unknown]
